FAERS Safety Report 5400688-2 (Version None)
Quarter: 2007Q3

REPORT INFORMATION
  Report Type: 
  Country: None (occurrence: None)
  Receive Date: 20070730
  Receipt Date: 20070718
  Transmission Date: 20080115
  Serious: Yes (Other)
  Sender: FDA-Public Use
  Company Number: US-PFIZER INC-2007059089

PATIENT
  Sex: Female
  Weight: 56.2 kg

DRUGS (11)
  1. XALATAN [Suspect]
     Indication: INTRAOCULAR PRESSURE INCREASED
     Route: 047
  2. PROTONIX [Concomitant]
  3. SINGULAIR [Concomitant]
  4. ALBUTEROL [Concomitant]
  5. IMITREX [Concomitant]
  6. CELEBREX [Concomitant]
  7. ACTIVELLA [Concomitant]
  8. ELMIRON [Concomitant]
  9. EPINASTINE HYDROCHLORIDE [Concomitant]
  10. CYCLOSPORINE [Concomitant]
  11. TILADE [Concomitant]

REACTIONS (3)
  - EYE OPERATION [None]
  - INCORRECT DOSE ADMINISTERED [None]
  - INTRAOCULAR PRESSURE INCREASED [None]
